FAERS Safety Report 15312549 (Version 1)
Quarter: 2018Q4

REPORT INFORMATION
  Report Type: Spontaneous
  Country: US (occurrence: US)
  Receive Date: 20180823
  Receipt Date: 20180823
  Transmission Date: 20190204
  Serious: No
  Sender: FDA-Public Use
  Company Number: US-SA-2018SA231732

PATIENT

DRUGS (2)
  1. DUPIXENT [Suspect]
     Active Substance: DUPILUMAB
  2. DUPILUMAB PRE-FILLED SYRINGE [Suspect]
     Active Substance: DUPILUMAB

REACTIONS (1)
  - Product use issue [Unknown]
